FAERS Safety Report 6904991-6 (Version None)
Quarter: 2010Q3

REPORT INFORMATION
  Report Type: 
  Country: None (occurrence: None)
  Receive Date: 20100804
  Receipt Date: 20090820
  Transmission Date: 20110219
  Serious: Yes (Other)
  Sender: FDA-Public Use
  Company Number: US-PFIZER INC-2009240850

PATIENT
  Sex: Female
  Weight: 63.492 kg

DRUGS (8)
  1. LYRICA [Suspect]
     Indication: NEURALGIA
     Dosage: 75 MG, 3X/DAY
     Dates: start: 20080101
  2. LYRICA [Suspect]
     Indication: PAIN MANAGEMENT
  3. XANAX [Concomitant]
     Dosage: UNK
  4. TRAZODONE [Concomitant]
     Dosage: UNK
  5. OXYCONTIN [Concomitant]
     Dosage: UNK
  6. OXYCODONE HCL AND ACETAMINOPHEN [Concomitant]
     Dosage: UNK
  7. PLAVIX [Concomitant]
     Dosage: UNK
  8. NITROGLYCERIN [Concomitant]
     Dosage: UNK

REACTIONS (3)
  - HALLUCINATION [None]
  - PAIN IN EXTREMITY [None]
  - PANIC DISORDER [None]
